FAERS Safety Report 4408833-2 (Version None)
Quarter: 2004Q3

REPORT INFORMATION
  Report Type: 
  Country: None (occurrence: None)
  Receive Date: 20040727
  Receipt Date: 20040716
  Transmission Date: 20050211
  Serious: Yes (Hospitalization)
  Sender: FDA-Public Use
  Company Number: JP-BRISTOL-MYERS SQUIBB COMPANY-12646386

PATIENT
  Age: 77 Year
  Sex: Male

DRUGS (2)
  1. GATIFLO [Suspect]
     Indication: PNEUMONIA
     Route: 048
     Dates: start: 20040701, end: 20040715
  2. GATIFLO [Suspect]
     Indication: EMPHYSEMA
     Route: 048
     Dates: start: 20040701, end: 20040715

REACTIONS (2)
  - HYPERGLYCAEMIA [None]
  - METABOLIC ACIDOSIS [None]
